FAERS Safety Report 6857347-9 (Version None)
Quarter: 2010Q3

REPORT INFORMATION
  Report Type: 
  Country: None (occurrence: None)
  Receive Date: 20100719
  Receipt Date: 20100706
  Transmission Date: 20110219
  Serious: Yes (Other)
  Sender: FDA-Public Use
  Company Number: JP-WATSON-2010-08988

PATIENT
  Age: 54 Year
  Sex: Female

DRUGS (2)
  1. FLUOROURACIL [Suspect]
     Indication: ANAL CANCER
     Dosage: 1000 MG/M2, DAILY
     Route: 042
  2. MITOMYCIN [Suspect]
     Indication: ANAL CANCER
     Dosage: 10 MG/M2, DAILY
     Route: 040

REACTIONS (1)
  - ERYTHEMA MULTIFORME [None]
